FAERS Safety Report 12079558 (Version 1)
Quarter: 2016Q1

REPORT INFORMATION
  Report Type: Spontaneous
  Country: GB (occurrence: GB)
  Receive Date: 20160216
  Receipt Date: 20160216
  Transmission Date: 20160526
  Serious: Yes (Disabling, Other)
  Sender: FDA-Public Use
  Company Number: GB-PFIZER INC-2016083854

PATIENT
  Age: 49 Year
  Sex: Female
  Weight: 56 kg

DRUGS (4)
  1. CHLORAMPHENICOL [Concomitant]
     Active Substance: CHLORAMPHENICOL
     Dosage: 1 DF, 4X/DAY APPLY
     Dates: start: 20151127, end: 20151202
  2. LEVOTHYROXINE. [Concomitant]
     Active Substance: LEVOTHYROXINE
     Dosage: 1 DF, 1X/DAY EACH MORNING
     Dates: start: 20141209
  3. FLUOROMETHOLONE. [Concomitant]
     Active Substance: FLUOROMETHOLONE
     Dosage: 2 DF, 2X/DAY AS DIRECTED
     Dates: start: 20151109, end: 20151116
  4. SERTRALINE HCL [Suspect]
     Active Substance: SERTRALINE HYDROCHLORIDE
     Dosage: UNK
     Route: 048
     Dates: start: 20160201, end: 20160202

REACTIONS (3)
  - Gastritis [Recovering/Resolving]
  - Nausea [Unknown]
  - Haematemesis [Unknown]

NARRATIVE: CASE EVENT DATE: 20160202
